FAERS Safety Report 22113313 (Version 1)
Quarter: 2023Q1

REPORT INFORMATION
  Report Type: Other
  Country: JP (occurrence: JP)
  Receive Date: 20230320
  Receipt Date: 20230320
  Transmission Date: 20230417
  Serious: Yes (Hospitalization, Other)
  Sender: FDA-Public Use
  Company Number: JP-CHUGAI-2023009108

PATIENT
  Age: 69 Year
  Sex: Female

DRUGS (1)
  1. TECENTRIQ [Suspect]
     Active Substance: ATEZOLIZUMAB
     Indication: Lung adenocarcinoma
     Route: 041

REACTIONS (3)
  - Encephalitis autoimmune [Recovering/Resolving]
  - Adrenal insufficiency [Unknown]
  - Silent thyroiditis [Unknown]
